FAERS Safety Report 9125228 (Version 1)
Quarter: 2013Q1

REPORT INFORMATION
  Report Type: Other
  Country: GR (occurrence: GR)
  Receive Date: 20130117
  Receipt Date: 20130117
  Transmission Date: 20140127
  Serious: Yes (Death)
  Sender: FDA-Public Use
  Company Number: GR-BRISTOL-MYERS SQUIBB COMPANY-17265901

PATIENT
  Sex: Male

DRUGS (3)
  1. ETOPOSIDE [Suspect]
     Indication: TESTIS CANCER
     Dosage: 1DF:165MG/M2 ON DAYS 1-3
  2. CISPLATIN [Suspect]
     Indication: TESTIS CANCER
     Dosage: 1DF:50MG/M2 ON DAYS 1-2
  3. BLEOMYCIN SULFATE [Suspect]
     Indication: TESTIS CANCER
     Dosage: DAY 1,8 AND 15
     Route: 042

REACTIONS (2)
  - Pulmonary toxicity [Fatal]
  - Bone marrow failure [Fatal]
